FAERS Safety Report 15473053 (Version 1)
Quarter: 2018Q4

REPORT INFORMATION
  Report Type: Spontaneous
  Country: US (occurrence: US)
  Receive Date: 20181008
  Receipt Date: 20181008
  Transmission Date: 20190205
  Serious: No
  Sender: FDA-Public Use
  Company Number: US-BAYER-2018-184319

PATIENT
  Age: 53 Year
  Sex: Female
  Weight: 53.97 kg

DRUGS (3)
  1. LAXATIVE [Concomitant]
     Active Substance: UNSPECIFIED INGREDIENT
  2. MIRALAX [Suspect]
     Active Substance: POLYETHYLENE GLYCOL 3350
     Dosage: UNK
     Route: 048
     Dates: start: 20181001
  3. MIRALAX [Suspect]
     Active Substance: POLYETHYLENE GLYCOL 3350
     Dosage: UNK
     Route: 048
     Dates: start: 2008, end: 2008

REACTIONS (5)
  - Product use in unapproved indication [Unknown]
  - Product use in unapproved indication [Unknown]
  - Product solubility abnormal [None]
  - Off label use [Unknown]
  - Product contamination physical [None]

NARRATIVE: CASE EVENT DATE: 2008
